FAERS Safety Report 7606451-6 (Version None)
Quarter: 2011Q3

REPORT INFORMATION
  Report Type: 
  Country: None (occurrence: None)
  Receive Date: 20110713
  Receipt Date: 20110629
  Transmission Date: 20111222
  Serious: Yes (Hospitalization)
  Sender: FDA-Public Use
  Company Number: GB-AMGEN-GBRSP2011033111

PATIENT
  Sex: Male
  Weight: 0.907 kg

DRUGS (1)
  1. ARANESP [Suspect]
     Dosage: UNK UNK, QWK
     Route: 064
     Dates: start: 20090819

REACTIONS (1)
  - PREMATURE BABY [None]
